FAERS Safety Report 19911727 (Version 1)
Quarter: 2021Q4

REPORT INFORMATION
  Report Type: Spontaneous
  Country: KR (occurrence: KR)
  Receive Date: 20211004
  Receipt Date: 20211004
  Transmission Date: 20220304
  Serious: Yes (Hospitalization, Disabling, Other)
  Sender: FDA-Public Use
  Company Number: KR-GLAXOSMITHKLINE-KR2021APC203285

PATIENT
  Age: 40 Year
  Sex: Male
  Weight: 63.7 kg

DRUGS (3)
  1. KIVEXA [Suspect]
     Active Substance: ABACAVIR SULFATE\LAMIVUDINE
     Indication: Acute HIV infection
     Dosage: 600 MG, QD
     Route: 048
     Dates: start: 20140619
  2. DARUNAVIR [Suspect]
     Active Substance: DARUNAVIR
     Indication: Acute HIV infection
     Dosage: 800 MG, QD
     Route: 048
     Dates: start: 20140315
  3. RITONAVIR [Suspect]
     Active Substance: RITONAVIR
     Indication: Acute HIV infection
     Dosage: 100 MG, QD
     Route: 048
     Dates: start: 20140315

REACTIONS (2)
  - Loss of consciousness [Not Recovered/Not Resolved]
  - Cognitive disorder [Not Recovered/Not Resolved]

NARRATIVE: CASE EVENT DATE: 20140325
